FAERS Safety Report 21661671 (Version 6)
Quarter: 2023Q2

REPORT INFORMATION
  Report Type: Spontaneous
  Country: US (occurrence: US)
  Receive Date: 20221130
  Receipt Date: 20230621
  Transmission Date: 20230721
  Serious: No
  Sender: FDA-Public Use
  Company Number: US-GLAXOSMITHKLINE-US2022AMR177597

PATIENT
  Age: 57 Year
  Sex: Female

DRUGS (6)
  1. ZEJULA [Suspect]
     Active Substance: NIRAPARIB
     Indication: Ovarian cancer
     Dosage: 200 MG, QD
     Route: 048
     Dates: start: 20221101, end: 20230130
  2. ZEJULA [Suspect]
     Active Substance: NIRAPARIB
     Dosage: 100 MG, QD
     Route: 048
     Dates: start: 20230220
  3. ZEJULA [Suspect]
     Active Substance: NIRAPARIB
     Dosage: UNK (100MG EVERY OTHER DAY AND 200MG EVERY OTHER DAY ALTERNATING DAYS)
     Dates: start: 20230307
  4. ZEJULA [Suspect]
     Active Substance: NIRAPARIB
     Dosage: 200 MG, QD (2-100 MG CAPSULES)
     Route: 048
  5. AVASTIN [Suspect]
     Active Substance: BEVACIZUMAB
     Indication: Product used for unknown indication
     Dosage: UNK, INFUSIONS EVERY 3 WEEKS
  6. ZITHROMAX [Concomitant]
     Active Substance: AZITHROMYCIN DIHYDRATE
     Indication: Product used for unknown indication
     Dosage: UNK

REACTIONS (22)
  - Acne [Recovering/Resolving]
  - Migraine [Recovered/Resolved]
  - Nausea [Recovered/Resolved]
  - Vomiting [Recovered/Resolved]
  - Nasal congestion [Not Recovered/Not Resolved]
  - Sinusitis [Not Recovered/Not Resolved]
  - Nasal dryness [Not Recovered/Not Resolved]
  - Epistaxis [Not Recovered/Not Resolved]
  - Stomatitis [Recovered/Resolved]
  - Haemoglobin decreased [Recovering/Resolving]
  - Mucosal inflammation [Recovered/Resolved]
  - Platelet count decreased [Recovered/Resolved]
  - Fatigue [Recovering/Resolving]
  - Dyspnoea exertional [Unknown]
  - Coronavirus test positive [Recovered/Resolved]
  - Rash [Unknown]
  - Madarosis [Not Recovered/Not Resolved]
  - Protein urine present [Not Recovered/Not Resolved]
  - Tumour marker increased [Unknown]
  - Anxiety [Unknown]
  - Product dose omission issue [Unknown]
  - Inappropriate schedule of product administration [Unknown]

NARRATIVE: CASE EVENT DATE: 20221101
